FAERS Safety Report 25275625 (Version 2)
Quarter: 2025Q2

REPORT INFORMATION
  Report Type: Report from Study
  Country: US (occurrence: US)
  Receive Date: 20250506
  Receipt Date: 20250606
  Transmission Date: 20250717
  Serious: No
  Sender: ALEXION PHARMACEUTICALS
  Company Number: US-AstraZeneca-CH-00843820A

PATIENT
  Age: 71 Year

DRUGS (1)
  1. OSIMERTINIB [Suspect]
     Active Substance: OSIMERTINIB
     Route: 065

REACTIONS (4)
  - Inability to afford medication [Unknown]
  - Nausea [Unknown]
  - Dry skin [Unknown]
  - Pruritus [Unknown]
